FAERS Safety Report 8305253-5 (Version None)
Quarter: 2012Q1

REPORT INFORMATION
  Report Type: 
  Country: None (occurrence: None)
  Receive Date: 20120326
  Receipt Date: 20111216
  Transmission Date: 20120608
  Serious: Yes (Hospitalization)
  Sender: FDA-Public Use
  Company Number: PHEH2011US009674

PATIENT
  Age: 24 Year
  Sex: Female

DRUGS (2)
  1. TASIGNA [Suspect]
     Dosage: 150 MG, BID
  2. ALLOPURINOL [Concomitant]

REACTIONS (4)
  - PYREXIA [None]
  - ARTHRALGIA [None]
  - OEDEMA PERIPHERAL [None]
  - OCULAR HYPERAEMIA [None]
